FAERS Safety Report 7112076-1 (Version None)
Quarter: 2010Q4

REPORT INFORMATION
  Report Type: 
  Country: None (occurrence: None)
  Receive Date: 20101119
  Receipt Date: 20101111
  Transmission Date: 20110411
  Serious: Yes (Disabling)
  Sender: FDA-Public Use
  Company Number: BR-US-EMD SERONO, INC.-230331J10BRA

PATIENT
  Sex: Female

DRUGS (10)
  1. REBIF [Suspect]
     Indication: PRIMARY PROGRESSIVE MULTIPLE SCLEROSIS
     Dates: start: 20091207
  2. REBIF [Suspect]
     Dates: start: 20011010, end: 20091001
  3. RETEMIC [Concomitant]
  4. ATENOLOL [Concomitant]
  5. SERTRALINE HYDROCHLORIDE [Concomitant]
  6. BACLOFEN [Concomitant]
  7. GLIFAGE XR [Concomitant]
  8. GAMALINE [Concomitant]
  9. FELDENE [Concomitant]
  10. DONAREN [Concomitant]

REACTIONS (8)
  - ACTIVITIES OF DAILY LIVING IMPAIRED [None]
  - APHASIA [None]
  - DYSPNOEA [None]
  - ESCHAR [None]
  - OFF LABEL USE [None]
  - PYREXIA [None]
  - URINARY TRACT INFECTION [None]
  - WEIGHT DECREASED [None]
